FAERS Safety Report 9039030 (Version 1)
Quarter: 2013Q1

REPORT INFORMATION
  Report Type: Spontaneous
  Country: US (occurrence: None)
  Receive Date: 20130123
  Receipt Date: 20130123
  Transmission Date: 20140127
  Serious: Yes (Other)
  Sender: FDA-Public Use
  Company Number: None

PATIENT
  Age: 61 Year
  Sex: Male
  Weight: 99.79 kg

DRUGS (2)
  1. ETODOLAC 200MG NDC 51672401601 [Suspect]
     Indication: CHEST PAIN
     Route: 048
     Dates: start: 20130107, end: 20130107
  2. ETODOLAC 200MG NDC 51672401601 [Suspect]
     Indication: HYPOAESTHESIA
     Route: 048
     Dates: start: 20130107, end: 20130107

REACTIONS (1)
  - Abdominal pain upper [None]
